FAERS Safety Report 24441904 (Version 2)
Quarter: 2024Q4

REPORT INFORMATION
  Report Type: Spontaneous
  Country: CH (occurrence: CH)
  Receive Date: 20241016
  Receipt Date: 20241017
  Transmission Date: 20250114
  Serious: No
  Sender: ROCHE
  Company Number: CH-ROCHE-3515183

PATIENT
  Age: 70 Year
  Sex: Female

DRUGS (2)
  1. HEMLIBRA [Suspect]
     Active Substance: EMICIZUMAB-KXWH
     Indication: Acquired haemophilia
     Dosage: FOR 3 WEEKS 3 MG/KG ONCE A WEEK, THEN 1.5 MG/KG EVERY 3 WEEKS
     Route: 065
     Dates: start: 20220223
  2. HEMLIBRA [Suspect]
     Active Substance: EMICIZUMAB-KXWH
     Dosage: FOR 3 WEEKS 3 MG/KG ONCE A WEEK, THEN 1.5 MG/KG EVERY 3 WEEKS
     Route: 065

REACTIONS (2)
  - Off label use [Unknown]
  - No adverse event [Unknown]
